FAERS Safety Report 15457102 (Version 2)
Quarter: 2018Q4

REPORT INFORMATION
  Report Type: Spontaneous
  Country: US (occurrence: US)
  Receive Date: 20181002
  Receipt Date: 20181231
  Transmission Date: 20190204
  Serious: Yes (Life-Threatening, Hospitalization, Other)
  Sender: FDA-Public Use
  Company Number: US-MAYNE PHARMA-2018MYN001414

PATIENT

DRUGS (1)
  1. DOFETILIDE. [Suspect]
     Active Substance: DOFETILIDE
     Indication: PRODUCT USED FOR UNKNOWN INDICATION

REACTIONS (4)
  - Adverse event [Unknown]
  - Cardiac arrest [Unknown]
  - Life support [Unknown]
  - Gallbladder operation [Unknown]

NARRATIVE: CASE EVENT DATE: 2006
